FAERS Safety Report 16441096 (Version 1)
Quarter: 2019Q2

REPORT INFORMATION
  Report Type: Report from Study
  Country: GR (occurrence: GR)
  Receive Date: 20190617
  Receipt Date: 20190617
  Transmission Date: 20190711
  Serious: Yes (Other)
  Sender: FDA-Public Use
  Company Number: GR-MYLANLABS-2019M1056686

PATIENT
  Age: 53 Year
  Sex: Female
  Weight: 76 kg

DRUGS (4)
  1. TAXOTERE [Suspect]
     Active Substance: DOCETAXEL
     Indication: HER-2 POSITIVE BREAST CANCER
     Dosage: MOST RECENT DOSE ON 24/MAY/2018.
     Route: 042
     Dates: start: 20180202
  2. PARAPLATIN [Suspect]
     Active Substance: CARBOPLATIN
     Indication: HER-2 POSITIVE BREAST CANCER
     Dosage: MOST RECENT DOSE ON 24/MAY/2018.
     Route: 042
     Dates: start: 20180207
  3. TRASTUZUMAB. [Suspect]
     Active Substance: TRASTUZUMAB
     Indication: HER-2 POSITIVE BREAST CANCER
     Dosage: 600 MILLIGRAM, Q3W
     Route: 058
     Dates: start: 20180202
  4. PERTUZUMAB. [Suspect]
     Active Substance: PERTUZUMAB
     Indication: HER-2 POSITIVE BREAST CANCER
     Dosage: MOST RECENT DOSE ON 24/MAY/2018
     Route: 042
     Dates: start: 20180202

REACTIONS (1)
  - Cardiotoxicity [Recovered/Resolved]

NARRATIVE: CASE EVENT DATE: 20180927
